APPROVED DRUG PRODUCT: NAPROXEN SODIUM AND PSEUDOEPHEDRINE HYDROCHLORIDE
Active Ingredient: NAPROXEN SODIUM; PSEUDOEPHEDRINE HYDROCHLORIDE
Strength: 220MG;120MG
Dosage Form/Route: TABLET, EXTENDED RELEASE;ORAL
Application: A211360 | Product #001
Applicant: AUROBINDO PHARMA LTD
Approved: Jun 1, 2022 | RLD: No | RS: No | Type: OTC